FAERS Safety Report 18046819 (Version 3)
Quarter: 2020Q4

REPORT INFORMATION
  Report Type: Spontaneous
  Country: DE (occurrence: DE)
  Receive Date: 20200720
  Receipt Date: 20201215
  Transmission Date: 20210113
  Serious: Yes (Other)
  Sender: FDA-Public Use
  Company Number: NVSC2020DE201900

PATIENT
  Sex: Female
  Weight: 90 kg

DRUGS (4)
  1. MAYZENT [Suspect]
     Active Substance: SIPONIMOD
     Indication: MULTIPLE SCLEROSIS
     Dosage: 1 MG, QD
     Route: 048
     Dates: start: 20200616, end: 20200813
  2. BACLOFEN. [Concomitant]
     Active Substance: BACLOFEN
     Indication: MUSCLE SPASTICITY
     Dosage: 75 MG, QD
     Route: 048
     Dates: start: 2013
  3. FAMPYRA [Concomitant]
     Active Substance: DALFAMPRIDINE
     Indication: PARESIS
     Dosage: 20 MG, QD
     Route: 048
     Dates: start: 2015
  4. BOTOX [Concomitant]
     Active Substance: ONABOTULINUMTOXINA
     Indication: NEUROGENIC BLADDER
     Dosage: FOUR TIMES PER YEAR (IN BLADDER)
     Route: 065

REACTIONS (3)
  - Leukopenia [Unknown]
  - Lymphocyte count decreased [Not Recovered/Not Resolved]
  - Alanine aminotransferase increased [Unknown]

NARRATIVE: CASE EVENT DATE: 20200714
